FAERS Safety Report 15853995 (Version 1)
Quarter: 2019Q1

REPORT INFORMATION
  Report Type: Spontaneous
  Country: US (occurrence: US)
  Receive Date: 20190122
  Receipt Date: 20190122
  Transmission Date: 20190417
  Serious: No
  Sender: FDA-Public Use
  Company Number: US-PFIZER INC-2019023537

PATIENT
  Age: 69 Year
  Sex: Female
  Weight: 95.71 kg

DRUGS (2)
  1. GABAPENTIN. [Suspect]
     Active Substance: GABAPENTIN
     Indication: HOT FLUSH
     Dosage: 600 MG, 2 CAPSULES AT BEDTIME
     Route: 048
  2. EFFEXOR XR [Concomitant]
     Active Substance: VENLAFAXINE HYDROCHLORIDE
     Indication: HOT FLUSH
     Dosage: UNK

REACTIONS (2)
  - Product use in unapproved indication [Unknown]
  - Sedation [Unknown]
